FAERS Safety Report 6857210-3 (Version None)
Quarter: 2010Q3

REPORT INFORMATION
  Report Type: 
  Country: None (occurrence: None)
  Receive Date: 20100719
  Receipt Date: 20100709
  Transmission Date: 20110219
  Serious: Yes (Death, Other)
  Sender: FDA-Public Use
  Company Number: JP-ABBOTT-10P-087-0652197-00

PATIENT
  Sex: Male
  Weight: 52 kg

DRUGS (11)
  1. HUMIRA [Suspect]
     Indication: RHEUMATOID ARTHRITIS
     Route: 058
     Dates: start: 20091028, end: 20091211
  2. HUMIRA [Suspect]
     Route: 058
     Dates: start: 20100227, end: 20100501
  3. METHOTREXATE [Concomitant]
     Indication: RHEUMATOID ARTHRITIS
     Dates: end: 20100225
  4. PREDNISOLONE [Concomitant]
     Indication: RHEUMATOID ARTHRITIS
     Route: 048
  5. CELECOXIB [Concomitant]
     Indication: RHEUMATOID ARTHRITIS
     Dosage: 200MG DAILY
     Dates: end: 20100227
  6. ISONIAZID [Concomitant]
     Indication: ANTIBIOTIC PROPHYLAXIS
     Dosage: 0.2MG DAILY
     Dates: start: 20091030, end: 20091224
  7. ISONIAZID [Concomitant]
  8. VALSARTAN [Concomitant]
     Indication: PRODUCT USED FOR UNKNOWN INDICATION
     Dosage: 40MG DAILY
  9. FAMOTIDINE [Concomitant]
     Indication: GASTRITIS PROPHYLAXIS
     Dosage: 20MG DAILY
  10. LOXOPROFEN SODIUM HYDRATE [Concomitant]
     Indication: RHEUMATOID ARTHRITIS
     Dosage: 60MG DAILY
  11. SENNOSIDE [Concomitant]
     Indication: PRODUCT USED FOR UNKNOWN INDICATION
     Dates: start: 20091014, end: 20091101

REACTIONS (14)
  - ABDOMINAL TENDERNESS [None]
  - ASTHENIA [None]
  - CEREBRAL INFARCTION [None]
  - CHOLECYSTITIS ACUTE [None]
  - DECREASED APPETITE [None]
  - ENTERITIS INFECTIOUS [None]
  - GASTRIC PERFORATION [None]
  - INFLAMMATION [None]
  - LIVER ABSCESS [None]
  - MUSCULAR WEAKNESS [None]
  - PYREXIA [None]
  - RESPIRATORY DISORDER [None]
  - RETROPERITONEAL ABSCESS [None]
  - STAPHYLOCOCCAL SEPSIS [None]
